FAERS Safety Report 7873637-5 (Version None)
Quarter: 2011Q4

REPORT INFORMATION
  Report Type: 
  Country: None (occurrence: None)
  Receive Date: 20111017
  Receipt Date: 20101221
  Transmission Date: 20120403
  Serious: Yes (Hospitalization)
  Sender: FDA-Public Use
  Company Number: 2011S1000002

PATIENT
  Sex: Female

DRUGS (5)
  1. POTASSIUM CHLORIDE [Concomitant]
  2. LASIX [Concomitant]
  3. LANOXIN [Concomitant]
  4. DARVOCET-N 100 [Suspect]
     Indication: ARTHRITIS
     Dosage: (AS REQUIRED),ORAL
     Route: 048
     Dates: start: 20040101, end: 20101201
  5. LISINOPRIL [Concomitant]

REACTIONS (2)
  - CARDIAC FAILURE CONGESTIVE [None]
  - HEART RATE INCREASED [None]
